FAERS Safety Report 9842560 (Version 2)
Quarter: 2014Q1

REPORT INFORMATION
  Report Type: Spontaneous
  Country: US (occurrence: US)
  Receive Date: 20140124
  Receipt Date: 20140124
  Transmission Date: 20141002
  Serious: No
  Sender: FDA-Public Use
  Company Number: US-GILEAD-2011-0046634

PATIENT
  Sex: Female

DRUGS (2)
  1. RANOLAZINE [Suspect]
     Indication: CORONARY ARTERY DISEASE
     Dosage: 500 MG, BID
  2. RANOLAZINE [Suspect]
     Indication: ANGINA PECTORIS

REACTIONS (1)
  - Therapeutic response unexpected [Unknown]
